FAERS Safety Report 7238389-0 (Version None)
Quarter: 2011Q1

REPORT INFORMATION
  Report Type: 
  Country: None (occurrence: None)
  Receive Date: 20110119
  Receipt Date: 20110119
  Transmission Date: 20110831
  Serious: Yes (Other)
  Sender: FDA-Public Use
  Company Number: None

PATIENT
  Age: 27 Year
  Sex: Male

DRUGS (3)
  1. FOSAPREPITANT 150 MG MERCK [Suspect]
     Dosage: 150 MG Q 2 WEEKS IV
     Route: 042
  2. DEXAMETHASONE 20 MG/5 ML UNKNOWN [Suspect]
     Indication: HYPERSENSITIVITY
     Dosage: 20 MG Q 2 WEEKS IV
     Route: 042
     Dates: start: 20110114, end: 20110114
  3. DEXAMETHASONE 20 MG/5 ML UNKNOWN [Suspect]
     Indication: NAUSEA
     Dosage: 20 MG Q 2 WEEKS IV
     Route: 042
     Dates: start: 20110114, end: 20110114

REACTIONS (4)
  - SKIN REACTION [None]
  - URTICARIA [None]
  - INFUSION RELATED REACTION [None]
  - PRURITUS [None]
